FAERS Safety Report 5481360-X (Version None)
Quarter: 2007Q4

REPORT INFORMATION
  Report Type: 
  Country: None (occurrence: None)
  Receive Date: 20071010
  Receipt Date: 20070815
  Transmission Date: 20080405
  Serious: Yes (Other)
  Sender: FDA-Public Use
  Company Number: US-PURDUE-USA_2007_0029014

PATIENT
  Sex: Male
  Weight: 118 kg

DRUGS (6)
  1. OXYCONTIN [Suspect]
     Indication: PAIN
     Dosage: 10 MG, SEE TEXT
     Dates: end: 20061026
  2. VALIUM [Concomitant]
     Dosage: 10 MG, TID
  3. SOMA [Concomitant]
     Dosage: 2 TABLET, DAILY
  4. HYDROCODONE [Concomitant]
     Dosage: 60 MG, DAILY
  5. TYLOX [Concomitant]
     Dosage: 35 MG, DAILY
  6. PERCOCET [Concomitant]

REACTIONS (14)
  - DEPRESSION [None]
  - DISTURBANCE IN ATTENTION [None]
  - DRUG DEPENDENCE [None]
  - DRUG TOLERANCE [None]
  - EUPHORIC MOOD [None]
  - GENERAL PHYSICAL HEALTH DETERIORATION [None]
  - INTENTIONAL DRUG MISUSE [None]
  - JUDGEMENT IMPAIRED [None]
  - MALAISE [None]
  - MEMORY IMPAIRMENT [None]
  - MENTAL DISORDER [None]
  - PAIN [None]
  - PERSONALITY CHANGE [None]
  - SUICIDAL IDEATION [None]
